FAERS Safety Report 7763312-X (Version None)
Quarter: 2011Q3

REPORT INFORMATION
  Report Type: 
  Country: None (occurrence: None)
  Receive Date: 20110920
  Receipt Date: 20110711
  Transmission Date: 20111222
  Serious: No
  Sender: FDA-Public Use
  Company Number: US-BAYER-2011-060984

PATIENT
  Age: 84 Year
  Sex: Male
  Weight: 82 kg

DRUGS (2)
  1. LIPITOR [Concomitant]
  2. ALEVE [Suspect]
     Indication: ANALGESIC THERAPY
     Dosage: 1 UNIT
     Route: 048
     Dates: start: 20110608, end: 20110708

REACTIONS (2)
  - RASH ERYTHEMATOUS [None]
  - DRUG INEFFECTIVE [None]
